FAERS Safety Report 7281978-8 (Version None)
Quarter: 2011Q1

REPORT INFORMATION
  Report Type: 
  Country: None (occurrence: None)
  Receive Date: 20110208
  Receipt Date: 20110126
  Transmission Date: 20110831
  Serious: Yes (Congenital Anomaly, Other)
  Sender: FDA-Public Use
  Company Number: SE-MYLANLABS-2010S1010283

PATIENT

DRUGS (1)
  1. FLUOXETINE [Suspect]

REACTIONS (3)
  - CEREBRAL PALSY [None]
  - BRAIN STEM THROMBOSIS [None]
  - DRUG EXPOSURE DURING PREGNANCY [None]
